FAERS Safety Report 4649863-5 (Version None)
Quarter: 2005Q2

REPORT INFORMATION
  Report Type: 
  Country: None (occurrence: None)
  Receive Date: 20050428
  Receipt Date: 20050415
  Transmission Date: 20051028
  Serious: Yes (Other)
  Sender: FDA-Public Use
  Company Number: 2005062311

PATIENT
  Age: 52 Year
  Sex: Female

DRUGS (1)
  1. BEXTRA [Suspect]
     Indication: SURGERY
     Dosage: ORAL
     Route: 048

REACTIONS (3)
  - FACE OEDEMA [None]
  - RASH ERYTHEMATOUS [None]
  - RASH PAPULAR [None]
